FAERS Safety Report 11886735 (Version 1)
Quarter: 2016Q1

REPORT INFORMATION
  Report Type: Spontaneous
  Country: FR (occurrence: FR)
  Receive Date: 20160104
  Receipt Date: 20160104
  Transmission Date: 20160526
  Serious: Yes (Hospitalization)
  Sender: FDA-Public Use
  Company Number: FR-PFIZER INC-2015474794

PATIENT
  Age: 62 Year
  Sex: Female

DRUGS (8)
  1. PLAQUENIL [Concomitant]
     Active Substance: HYDROXYCHLOROQUINE SULFATE
  2. GINKGO EXTRACT\HEPTAMINOL\TROXERUTIN [Concomitant]
     Active Substance: GINKGO\HEPTAMINOL\TROXERUTIN
  3. ALTEIS [Concomitant]
     Active Substance: OLMESARTAN MEDOXOMIL
  4. LYRICA [Suspect]
     Active Substance: PREGABALIN
     Indication: RESTLESS LEGS SYNDROME
     Dosage: 350 MG, 1X/DAY
     Route: 048
     Dates: start: 2011
  5. UVEDOSE [Concomitant]
     Active Substance: CHOLECALCIFEROL
  6. INEXIUM [Concomitant]
     Active Substance: ESOMEPRAZOLE
  7. FLUDEX [Concomitant]
     Active Substance: INDAPAMIDE
  8. CORTANCYL [Concomitant]
     Active Substance: PREDNISONE

REACTIONS (2)
  - Neutropenia [Not Recovered/Not Resolved]
  - Product use issue [Unknown]

NARRATIVE: CASE EVENT DATE: 2011
